FAERS Safety Report 4854708-4 (Version None)
Quarter: 2005Q4

REPORT INFORMATION
  Report Type: 
  Country: None (occurrence: None)
  Receive Date: 20051214
  Receipt Date: 20051214
  Transmission Date: 20060501
  Serious: Yes (Hospitalization)
  Sender: FDA-Public Use
  Company Number: None

PATIENT
  Age: 49 Year
  Sex: Male
  Weight: 110 kg

DRUGS (2)
  1. OCTREOTIDE [Suspect]
     Indication: HEPATIC NEOPLASM MALIGNANT
     Dosage: 200 MCG TID SQ
     Route: 058
     Dates: start: 20051108, end: 20051121
  2. OCTREOTIDE LAR [Suspect]
     Indication: HEPATIC NEOPLASM MALIGNANT
     Dosage: 20 MG IM
     Route: 030
     Dates: start: 20051116

REACTIONS (8)
  - ANOREXIA [None]
  - ASCITES [None]
  - CONFUSIONAL STATE [None]
  - DISEASE PROGRESSION [None]
  - DYSPNOEA [None]
  - NAUSEA [None]
  - OEDEMA PERIPHERAL [None]
  - SCROTAL OEDEMA [None]
